FAERS Safety Report 5521419-1 (Version None)
Quarter: 2007Q4

REPORT INFORMATION
  Report Type: 
  Country: None (occurrence: None)
  Receive Date: 20071119
  Receipt Date: 20071112
  Transmission Date: 20080405
  Serious: Yes (Other)
  Sender: FDA-Public Use
  Company Number: US-PFIZER INC-2007095277

PATIENT
  Sex: Female

DRUGS (1)
  1. CADUET [Suspect]

REACTIONS (7)
  - CHEST PAIN [None]
  - CONFUSIONAL STATE [None]
  - EXPIRED DRUG ADMINISTERED [None]
  - HALLUCINATION [None]
  - MUSCLE SPASMS [None]
  - NECK PAIN [None]
  - PALPITATIONS [None]
